FAERS Safety Report 4561486-5 (Version None)
Quarter: 2005Q1

REPORT INFORMATION
  Report Type: 
  Country: None (occurrence: None)
  Receive Date: 20050121
  Receipt Date: 20050105
  Transmission Date: 20050727
  Serious: Yes (Death, Other)
  Sender: FDA-Public Use
  Company Number: US_0501109899

PATIENT

DRUGS (1)
  1. ZYPREXA [Suspect]
     Indication: MENTAL DISORDER
     Dates: start: 20020501, end: 20030901

REACTIONS (2)
  - HAEMANGIOMA [None]
  - PITUITARY TUMOUR BENIGN [None]
